FAERS Safety Report 5043642-5 (Version None)
Quarter: 2006Q2

REPORT INFORMATION
  Report Type: 
  Country: None (occurrence: None)
  Receive Date: 20060628
  Receipt Date: 20060614
  Transmission Date: 20061013
  Serious: Yes (Hospitalization)
  Sender: FDA-Public Use
  Company Number: T200600656

PATIENT
  Age: 60 Year
  Sex: Female

DRUGS (1)
  1. METHADOSE [Suspect]
     Indication: PAIN
     Dosage: 10 MG, TID
     Dates: start: 20060605, end: 20060601

REACTIONS (2)
  - DRUG INEFFECTIVE [None]
  - DRUG WITHDRAWAL SYNDROME [None]
